FAERS Safety Report 8176202-8 (Version None)
Quarter: 2012Q1

REPORT INFORMATION
  Report Type: 
  Country: None (occurrence: None)
  Receive Date: 20120301
  Receipt Date: 20111125
  Transmission Date: 20120608
  Serious: Yes (Other)
  Sender: FDA-Public Use
  Company Number: CA-JNJFOC-20120109995

PATIENT
  Sex: Male
  Weight: 73.6 kg

DRUGS (5)
  1. REMICADE [Suspect]
     Indication: CROHN'S DISEASE
     Route: 042
     Dates: start: 20111125
  2. REMICADE [Suspect]
     Route: 042
     Dates: start: 20080101
  3. PREDNISONE TAB [Concomitant]
     Route: 065
  4. MESALAMINE [Concomitant]
     Route: 065
  5. AZATHIOPRINE [Concomitant]
     Route: 065

REACTIONS (4)
  - DIARRHOEA [None]
  - ABDOMINAL PAIN [None]
  - DEHYDRATION [None]
  - MUCOSAL HAEMORRHAGE [None]
